FAERS Safety Report 7045838-X (Version None)
Quarter: 2010Q4

REPORT INFORMATION
  Report Type: 
  Country: None (occurrence: None)
  Receive Date: 20101014
  Receipt Date: 20101006
  Transmission Date: 20110411
  Serious: Yes (Life-Threatening, Hospitalization)
  Sender: FDA-Public Use
  Company Number: US-MPIJNJ-2010-05127

PATIENT
  Age: 52 Year
  Sex: Male
  Weight: 110.66 kg

DRUGS (3)
  1. VELCADE [Suspect]
     Indication: MULTIPLE MYELOMA
     Dosage: 2.8 MG, CYCLIC
     Route: 042
     Dates: start: 20100913, end: 20100923
  2. THALIDOMIDE [Suspect]
     Indication: MULTIPLE MYELOMA
     Dosage: 15 MG, CYCLIC
     Route: 048
     Dates: start: 20100913, end: 20100923
  3. DECADRON [Suspect]
     Indication: MULTIPLE MYELOMA
     Dosage: 40 MG, CYCLIC
     Route: 048
     Dates: start: 20100913, end: 20100923

REACTIONS (6)
  - DIARRHOEA [None]
  - ESCHERICHIA TEST POSITIVE [None]
  - HYPOTENSION [None]
  - PAIN IN EXTREMITY [None]
  - STREPTOCOCCUS TEST POSITIVE [None]
  - VOMITING [None]
